FAERS Safety Report 21128952 (Version 4)
Quarter: 2023Q4

REPORT INFORMATION
  Report Type: Other
  Country: DE (occurrence: None)
  Receive Date: 20220725
  Receipt Date: 20231227
  Transmission Date: 20240110
  Serious: Yes (Hospitalization)
  Sender: FDA-Public Use
  Company Number: DE-ROCHE-3139883

PATIENT
  Age: 43 Year
  Sex: Female

DRUGS (6)
  1. OCREVUS [Suspect]
     Active Substance: OCRELIZUMAB
     Indication: Relapsing multiple sclerosis
     Route: 042
     Dates: start: 20180704, end: 20180718
  2. OCREVUS [Suspect]
     Active Substance: OCRELIZUMAB
     Route: 042
     Dates: start: 20181219
  3. NABIXIMOLS [Concomitant]
     Active Substance: NABIXIMOLS
     Dosage: DEFINITION OF THE INTERVAL: AS REQUIRED
     Route: 050
     Dates: start: 2019
  4. MIRENA [Concomitant]
     Active Substance: LEVONORGESTREL
     Indication: Contraception
     Route: 050
  5. DALFAMPRIDINE [Concomitant]
     Active Substance: DALFAMPRIDINE
     Route: 048
  6. AZITHROMYCIN [Concomitant]
     Active Substance: AZITHROMYCIN
     Indication: Sinusitis
     Route: 048

REACTIONS (2)
  - COVID-19 [Recovered/Resolved]
  - Unexpected vaginal bleeding on hormonal IUD [Recovered/Resolved]

NARRATIVE: CASE EVENT DATE: 20220126
